FAERS Safety Report 15749553 (Version 2)
Quarter: 2019Q2

REPORT INFORMATION
  Report Type: Spontaneous
  Country: CN (occurrence: CN)
  Receive Date: 20181221
  Receipt Date: 20190521
  Transmission Date: 20190711
  Serious: Yes (Hospitalization)
  Sender: FDA-Public Use
  Company Number: CN-SUN PHARMACEUTICAL INDUSTRIES LTD-2018R1-193766

PATIENT
  Age: 70 Year
  Sex: Female

DRUGS (6)
  1. ACETYLSALICYLIC ACID [Suspect]
     Active Substance: ASPIRIN
     Indication: ANTICOAGULANT THERAPY
     Dosage: 100 MILLIGRAM, QD
     Route: 065
  2. TIGRAYLO [TICAGRELOR] [Suspect]
     Active Substance: TICAGRELOR
     Indication: ARTERIOSCLEROSIS
     Dosage: 90 MILLIGRAM, BID
     Route: 065
  3. ENOXAPARIN SODIUM. [Suspect]
     Active Substance: ENOXAPARIN SODIUM
     Indication: ARTERIOSCLEROSIS
     Dosage: 0.4 MILLILITER, BID
     Route: 058
  4. HEPARIN [Suspect]
     Active Substance: HEPARIN SODIUM
     Indication: INTRAOPERATIVE CARE
     Dosage: 2000 UNITS
     Route: 037
  5. HEPARIN [Suspect]
     Active Substance: HEPARIN SODIUM
     Dosage: 3500 UNITS
     Route: 042
  6. ACETYLSALICYLIC ACID [Suspect]
     Active Substance: ASPIRIN
     Indication: ARTERIOSCLEROSIS

REACTIONS (4)
  - Large intestinal haemorrhage [Recovered/Resolved]
  - Colonic haematoma [Recovered/Resolved]
  - Gastrointestinal necrosis [Recovered/Resolved]
  - Haematochezia [Recovered/Resolved]
